FAERS Safety Report 7967803-8 (Version None)
Quarter: 2011Q4

REPORT INFORMATION
  Report Type: 
  Country: None (occurrence: None)
  Receive Date: 20111209
  Receipt Date: 20111129
  Transmission Date: 20120403
  Serious: Yes (Hospitalization)
  Sender: FDA-Public Use
  Company Number: DE-PFIZER INC-2011290595

PATIENT
  Age: 73 Year
  Sex: Male

DRUGS (9)
  1. PANTOPRAZOLE [Concomitant]
     Dosage: 40 MG, UNK
     Dates: start: 20110628
  2. NOVALGIN [Concomitant]
     Dosage: 30 GTT, UNK
     Dates: start: 20110927
  3. ENALAPRIL [Concomitant]
     Dosage: 10 MG, UNK
     Dates: start: 20100706
  4. BISOPROLOL [Concomitant]
     Dosage: 10 MG, UNK
     Dates: start: 20100706
  5. AMLODIPINE [Concomitant]
     Dosage: 5 MG, UNK
     Dates: start: 20100706
  6. ALLOPURINOL [Concomitant]
     Dosage: 100 MG, UNK
  7. SUTENT [Suspect]
     Dosage: 37.5 MG, UNK
  8. ASPIRIN [Concomitant]
     Dosage: 100 MG, UNK
     Dates: start: 20100706
  9. SIMVASTATIN [Concomitant]
     Dosage: 20 MG, UNK
     Dates: start: 20100706

REACTIONS (1)
  - ARTERIOSCLEROSIS CORONARY ARTERY [None]
